FAERS Safety Report 10288849 (Version 1)
Quarter: 2014Q3

REPORT INFORMATION
  Report Type: Spontaneous
  Country: FR (occurrence: FR)
  Receive Date: 20140709
  Receipt Date: 20140709
  Transmission Date: 20150326
  Serious: Yes (Hospitalization)
  Sender: FDA-Public Use
  Company Number: PHHY2014FR083218

PATIENT
  Age: 66 Year
  Sex: Female

DRUGS (2)
  1. BACTRIM [Suspect]
     Active Substance: SULFAMETHOXAZOLE\TRIMETHOPRIM
     Dosage: 2 DF, BID
     Route: 048
     Dates: start: 20131105, end: 20131219
  2. RIMACTAN SANDOZ [Suspect]
     Active Substance: RIFAMPIN
     Dosage: 2 DF, QD
     Route: 048
     Dates: start: 20131105, end: 20131217

REACTIONS (1)
  - Neutropenia [Recovered/Resolved]

NARRATIVE: CASE EVENT DATE: 20131220
